FAERS Safety Report 20981386 (Version 6)
Quarter: 2023Q1

REPORT INFORMATION
  Report Type: Report from Study
  Country: CO (occurrence: CO)
  Receive Date: 20220620
  Receipt Date: 20230309
  Transmission Date: 20230417
  Serious: Yes (Other)
  Sender: FDA-Public Use
  Company Number: CO-NOVARTISPH-NVSC2021CO153553

PATIENT
  Sex: Female

DRUGS (5)
  1. KISQALI [Suspect]
     Active Substance: RIBOCICLIB
     Indication: Breast cancer metastatic
     Dosage: 600 MG, QD
     Route: 048
  2. KISQALI [Suspect]
     Active Substance: RIBOCICLIB
     Dosage: UNK
     Route: 048
  3. FEMARA [Suspect]
     Active Substance: LETROZOLE
     Indication: Breast cancer
     Dosage: 2.5 MG, QD
     Route: 048
  4. FEMARA [Suspect]
     Active Substance: LETROZOLE
     Dosage: UNK
     Route: 048
  5. PALBOCICLIB [Suspect]
     Active Substance: PALBOCICLIB
     Indication: Product used for unknown indication
     Dosage: UNK
     Route: 065

REACTIONS (21)
  - Chest injury [Unknown]
  - Contusion [Recovering/Resolving]
  - Breast pain [Unknown]
  - Hepatitis [Recovered/Resolved]
  - Gastritis [Unknown]
  - Pain [Unknown]
  - Inflammation [Recovering/Resolving]
  - Skin irritation [Recovering/Resolving]
  - Pain in extremity [Unknown]
  - Breast swelling [Unknown]
  - Painful respiration [Unknown]
  - Feeling abnormal [Unknown]
  - Limb injury [Unknown]
  - Anxiety [Unknown]
  - Axillary pain [Unknown]
  - Movement disorder [Unknown]
  - Colitis [Recovered/Resolved]
  - Fall [Unknown]
  - Malaise [Unknown]
  - Weight decreased [Unknown]
  - Erythema [Unknown]
